FAERS Safety Report 9849741 (Version 2)
Quarter: 2014Q4

REPORT INFORMATION
  Report Type: Spontaneous
  Country: US (occurrence: US)
  Receive Date: 20140128
  Receipt Date: 20141217
  Transmission Date: 20150529
  Serious: No
  Sender: FDA-Public Use
  Company Number: US-PFIZER INC-2014023136

PATIENT
  Age: 73 Year
  Sex: Female

DRUGS (17)
  1. HYDROCHLOROTHIAZIDE. [Suspect]
     Active Substance: HYDROCHLOROTHIAZIDE
     Dosage: UNK
  2. BYSTOLIC [Suspect]
     Active Substance: NEBIVOLOL HYDROCHLORIDE
     Dosage: UNK
  3. NIFEDIPINE. [Suspect]
     Active Substance: NIFEDIPINE
     Dosage: UNK
  4. IODINE [Suspect]
     Active Substance: IODINE
     Dosage: UNK
  5. CIPROFLOXACIN. [Suspect]
     Active Substance: CIPROFLOXACIN
     Dosage: UNK
  6. INDAPAMIDE. [Suspect]
     Active Substance: INDAPAMIDE
     Dosage: UNK
  7. BACTRIM [Suspect]
     Active Substance: SULFAMETHOXAZOLE\TRIMETHOPRIM
     Dosage: UNK
  8. NORVASC [Suspect]
     Active Substance: AMLODIPINE BESYLATE
     Dosage: UNK
  9. NYSTATIN. [Suspect]
     Active Substance: NYSTATIN
     Dosage: UNK
  10. FAMVIR [Suspect]
     Active Substance: FAMCICLOVIR
     Dosage: UNK
  11. CLONIDINE. [Suspect]
     Active Substance: CLONIDINE
     Dosage: UNK
  12. AVALIDE [Suspect]
     Active Substance: HYDROCHLOROTHIAZIDE\IRBESARTAN
     Dosage: UNK
  13. CODEINE [Suspect]
     Active Substance: CODEINE
     Dosage: UNK
  14. KEFLEX [Suspect]
     Active Substance: CEPHALEXIN
     Dosage: UNK
  15. LISINOPRIL. [Suspect]
     Active Substance: LISINOPRIL
     Dosage: UNK
  16. CLARITHROMYCIN. [Suspect]
     Active Substance: CLARITHROMYCIN
     Dosage: UNK
  17. PREDNISONE. [Suspect]
     Active Substance: PREDNISONE
     Dosage: UNK

REACTIONS (1)
  - Drug hypersensitivity [Unknown]
